FAERS Safety Report 20946638 (Version 1)
Quarter: 2022Q2

REPORT INFORMATION
  Report Type: Other
  Country: GB (occurrence: None)
  Receive Date: 20220610
  Receipt Date: 20220610
  Transmission Date: 20220721
  Serious: Yes (Other)
  Sender: FDA-Public Use
  Company Number: GB-Merck Healthcare KGaA-9327510

PATIENT
  Age: 23 Year
  Sex: Female

DRUGS (8)
  1. METFORMIN HYDROCHLORIDE [Suspect]
     Active Substance: METFORMIN HYDROCHLORIDE
     Indication: Type 1 diabetes mellitus
     Dosage: METFORMIN THERAPY WAS INITIATED AND UP TITRATED TO MAXIMUM DOSE
  2. HYDROCORTISONE [Concomitant]
     Active Substance: HYDROCORTISONE
     Indication: Type 1 diabetes mellitus
  3. HYDROCORTISONE [Concomitant]
     Active Substance: HYDROCORTISONE
  4. INSULIN NOS [Concomitant]
     Active Substance: INSULIN NOS
     Indication: Type 1 diabetes mellitus
     Dosage: (92 UNITS/DAY)
  5. INSULIN NOS [Concomitant]
     Active Substance: INSULIN NOS
     Dosage: (140 UNITS/DAY)
  6. INSULIN NOS [Concomitant]
     Active Substance: INSULIN NOS
     Dosage: (226 UNITS/DAY)
  7. INSULIN NOS [Concomitant]
     Active Substance: INSULIN NOS
     Dosage: (65 UNITS/DAY)
  8. INSULIN NOS [Concomitant]
     Active Substance: INSULIN NOS
     Dosage: (42 UNITS/DAY)

REACTIONS (4)
  - Complication of pregnancy [Recovered/Resolved]
  - Premature delivery [Recovered/Resolved]
  - Live birth [Recovered/Resolved]
  - Maternal exposure during pregnancy [Recovered/Resolved]
